FAERS Safety Report 4435340-3 (Version None)
Quarter: 2004Q3

REPORT INFORMATION
  Report Type: 
  Country: None (occurrence: None)
  Receive Date: 20040827
  Receipt Date: 20040824
  Transmission Date: 20050211
  Serious: Yes (Death)
  Sender: FDA-Public Use
  Company Number: US-JNJFOC-20040505671

PATIENT
  Sex: Female
  Weight: 119.3 kg

DRUGS (6)
  1. DURAGESIC [Suspect]
     Route: 062
  2. DURAGESIC [Suspect]
     Route: 062
  3. DURAGESIC [Suspect]
     Route: 062
  4. DURAGESIC [Suspect]
     Route: 062
  5. VICODIN [Concomitant]
  6. VICODIN [Concomitant]
     Indication: PAIN

REACTIONS (2)
  - INTENTIONAL MISUSE [None]
  - OVERDOSE [None]
